FAERS Safety Report 9456539 (Version 1)
Quarter: 2013Q3

REPORT INFORMATION
  Report Type: Spontaneous
  Country: GB (occurrence: None)
  Receive Date: 20130809
  Receipt Date: 20130809
  Transmission Date: 20140515
  Serious: Yes (Hospitalization)
  Sender: FDA-Public Use
  Company Number: GER/UKI/13/0033797

PATIENT
  Age: 59 Year
  Sex: Female
  Weight: 65 kg

DRUGS (2)
  1. SERTRALINE (SERTRALINE) [Suspect]
     Indication: ANXIETY DISORDER
     Route: 048
     Dates: start: 20130712
  2. COPAXONE (GLATIRAMER ACETATE) [Suspect]
     Indication: PRODUCT USED FOR UNKNOWN INDICATION
     Route: 058

REACTIONS (4)
  - Agitation [None]
  - Confusional state [None]
  - Anxiety [None]
  - Paranoia [None]
